FAERS Safety Report 12706633 (Version 7)
Quarter: 2017Q3

REPORT INFORMATION
  Report Type: Report from Study
  Country: US (occurrence: US)
  Receive Date: 20160901
  Receipt Date: 20170810
  Transmission Date: 20171127
  Serious: Yes (Death, Hospitalization, Other)
  Sender: FDA-Public Use
  Company Number: US-JNJFOC-20160801697

PATIENT
  Age: 81 Year
  Sex: Male
  Weight: 130 kg

DRUGS (27)
  1. CENTRUM SILVER [Concomitant]
     Active Substance: MINERALS\VITAMINS
  2. MACROGOL [Concomitant]
     Active Substance: POLYETHYLENE GLYCOLS
  3. IMBRUVICA [Suspect]
     Active Substance: IBRUTINIB
     Indication: CHRONIC LYMPHOCYTIC LEUKAEMIA RECURRENT
     Route: 048
     Dates: start: 20140317, end: 20160421
  4. ZYLOPRIM [Concomitant]
     Active Substance: ALLOPURINOL
     Route: 048
  5. VITAMIN D3 [Concomitant]
     Active Substance: CHOLECALCIFEROL
  6. IDELALISIB [Concomitant]
     Active Substance: IDELALISIB
     Route: 048
  7. IMBRUVICA [Suspect]
     Active Substance: IBRUTINIB
     Indication: CHRONIC LYMPHOCYTIC LEUKAEMIA RECURRENT
     Route: 048
     Dates: start: 20160422, end: 20160711
  8. RITUXAN [Suspect]
     Active Substance: RITUXIMAB
     Indication: CHRONIC LYMPHOCYTIC LEUKAEMIA
     Dates: start: 20140317
  9. RITUXAN [Suspect]
     Active Substance: RITUXIMAB
     Indication: CHRONIC LYMPHOCYTIC LEUKAEMIA
     Dates: start: 20140324
  10. CELEXA [Concomitant]
     Active Substance: CITALOPRAM HYDROBROMIDE
     Route: 048
  11. FERROUS GLUCONATE [Concomitant]
     Active Substance: FERROUS GLUCONATE
     Route: 048
  12. IMBRUVICA [Suspect]
     Active Substance: IBRUTINIB
     Indication: CHRONIC LYMPHOCYTIC LEUKAEMIA RECURRENT
     Route: 048
     Dates: start: 201606
  13. TYLENOL [Concomitant]
     Active Substance: ACETAMINOPHEN
     Indication: PAIN
     Route: 048
  14. SULFAMETHOXAZOLE W/TRIMETHOPRIM [Concomitant]
     Active Substance: SULFAMETHOXAZOLE\TRIMETHOPRIM
     Dosage: 800-160 MG
     Route: 048
  15. COZAAR [Concomitant]
     Active Substance: LOSARTAN POTASSIUM
     Route: 048
  16. ZANTAC [Concomitant]
     Active Substance: RANITIDINE HYDROCHLORIDE
     Indication: GASTRIC ULCER
     Route: 048
  17. RITUXAN [Suspect]
     Active Substance: RITUXIMAB
     Indication: CHRONIC LYMPHOCYTIC LEUKAEMIA
     Dates: start: 20140714
  18. RITUXAN [Suspect]
     Active Substance: RITUXIMAB
     Indication: CHRONIC LYMPHOCYTIC LEUKAEMIA
     Dates: start: 20140519
  19. ECOTRIN [Concomitant]
     Active Substance: ASPIRIN
     Route: 048
  20. LOTRIMIN [Concomitant]
     Active Substance: CLOTRIMAZOLE
     Route: 061
  21. RITUXAN [Suspect]
     Active Substance: RITUXIMAB
     Indication: CHRONIC LYMPHOCYTIC LEUKAEMIA
     Dates: start: 20140421
  22. COREG [Concomitant]
     Active Substance: CARVEDILOL
     Route: 048
  23. LASIX [Concomitant]
     Active Substance: FUROSEMIDE
     Route: 048
  24. ASA [Concomitant]
     Active Substance: ASPIRIN
  25. ZANTAC [Concomitant]
     Active Substance: RANITIDINE HYDROCHLORIDE
     Indication: PEPTIC ULCER
     Route: 048
  26. HYTRIN [Concomitant]
     Active Substance: TERAZOSIN HYDROCHLORIDE
     Route: 048
  27. COUMADIN [Concomitant]
     Active Substance: WARFARIN SODIUM
     Route: 048

REACTIONS (51)
  - Pericardial effusion [Unknown]
  - Incorrect dose administered [Unknown]
  - Nail growth abnormal [Unknown]
  - Blood glucose increased [Unknown]
  - Prostatic specific antigen increased [Unknown]
  - Haematospermia [Unknown]
  - White blood cell count increased [Unknown]
  - Off label use [Unknown]
  - Pneumonia [Fatal]
  - Peripheral venous disease [Unknown]
  - Liver function test abnormal [Unknown]
  - Bowen^s disease [Unknown]
  - Squamous cell carcinoma [Unknown]
  - Dysplastic naevus [Unknown]
  - Haemorrhage intracranial [Unknown]
  - Hyperlipidaemia [Unknown]
  - Acute respiratory failure [Unknown]
  - Gastrooesophageal reflux disease [Unknown]
  - Multiple organ dysfunction syndrome [Fatal]
  - Septic shock [Fatal]
  - Coronary artery disease [Unknown]
  - Facial paralysis [Unknown]
  - Peripheral vascular disorder [Unknown]
  - International normalised ratio increased [Unknown]
  - Neutrophil count decreased [Not Recovered/Not Resolved]
  - Benign prostatic hyperplasia [Unknown]
  - Rhinitis allergic [Unknown]
  - Actinic keratosis [Unknown]
  - Sleep apnoea syndrome [Unknown]
  - Epistaxis [Unknown]
  - Platelet count decreased [Unknown]
  - Aortic stenosis [Unknown]
  - Milia [Unknown]
  - Lymphoedema [Unknown]
  - Malignant pleural effusion [Recovering/Resolving]
  - Eye haemorrhage [Unknown]
  - Dyspnoea exertional [Unknown]
  - Left ventricular dysfunction [Unknown]
  - Hydrocele [Unknown]
  - Ecchymosis [Not Recovered/Not Resolved]
  - Eye contusion [Unknown]
  - Anaemia [Unknown]
  - Transient ischaemic attack [Unknown]
  - Acute kidney injury [Unknown]
  - Aphasia [Unknown]
  - Cataract [Unknown]
  - Hypoaesthesia [Unknown]
  - Dermatophytosis of nail [Unknown]
  - Peripheral swelling [Not Recovered/Not Resolved]
  - Red blood cell count decreased [Unknown]
  - Rash [Unknown]

NARRATIVE: CASE EVENT DATE: 20140317
